FAERS Safety Report 7968752-1 (Version None)
Quarter: 2011Q4

REPORT INFORMATION
  Report Type: 
  Country: None (occurrence: None)
  Receive Date: 20111122
  Receipt Date: 20110808
  Transmission Date: 20120403
  Serious: No
  Sender: FDA-Public Use
  Company Number: PHHY2011US69182

PATIENT
  Age: 52 Year
  Sex: Male

DRUGS (3)
  1. ZYRTEC [Concomitant]
  2. LIPITOR [Concomitant]
  3. GILENYA [Suspect]
     Indication: MULTIPLE SCLEROSIS
     Dosage: 0.5 MG, QD, ORAL
     Route: 048
     Dates: start: 20110720

REACTIONS (7)
  - CONFUSIONAL STATE [None]
  - SINUSITIS [None]
  - FACIAL PAIN [None]
  - FATIGUE [None]
  - SOMNOLENCE [None]
  - PAIN [None]
  - HEART RATE DECREASED [None]
